FAERS Safety Report 6259217-6 (Version None)
Quarter: 2009Q3

REPORT INFORMATION
  Report Type: 
  Country: None (occurrence: None)
  Receive Date: 20090707
  Receipt Date: 20090617
  Transmission Date: 20100115
  Serious: Yes (Hospitalization)
  Sender: FDA-Public Use
  Company Number: NZ-AVENTIS-200916506GDDC

PATIENT
  Age: 64 Year
  Sex: Female

DRUGS (5)
  1. LEFLUNOMIDE [Suspect]
     Dates: start: 20051201, end: 20060301
  2. DICLOFENAC SODIUM [Suspect]
  3. QUINAPRIL [Suspect]
  4. COTRIM [Suspect]
     Dosage: DOSE: UNK
     Route: 042
     Dates: start: 20060301
  5. OMEPRAZOLE [Concomitant]

REACTIONS (1)
  - RENAL FAILURE ACUTE [None]
